FAERS Safety Report 9913546 (Version 1)
Quarter: 2014Q1

REPORT INFORMATION
  Report Type: Spontaneous
  Country: US (occurrence: None)
  Receive Date: 20140212
  Receipt Date: 20140212
  Transmission Date: 20141002
  Serious: Yes (Death)
  Sender: FDA-Public Use
  Company Number: AUR-APL-2014-01079

PATIENT
  Age: 47 Year
  Sex: Female

DRUGS (7)
  1. QUETIAPINE (QUETIAPINE) [Suspect]
     Indication: PRODUCT USED FOR UNKNOWN INDICATION
  2. ALPRAZOLAM (ALPRAZOLAM) [Suspect]
  3. HEROIN (DIAMORPHINE) (DIAMORPHINE) [Suspect]
  4. DEXTROMETHORPHAN [Suspect]
  5. QUININE [Suspect]
  6. DILTIAZEM [Suspect]
  7. CODEINE (CODEINE) [Suspect]

REACTIONS (2)
  - Drug abuse [None]
  - Toxicity to various agents [None]
